FAERS Safety Report 15757738 (Version 8)
Quarter: 2019Q2

REPORT INFORMATION
  Report Type: Report from Study
  Country: CN (occurrence: CN)
  Receive Date: 20181225
  Receipt Date: 20190610
  Transmission Date: 20190711
  Serious: Yes (Hospitalization)
  Sender: FDA-Public Use
  Company Number: CN-ROCHE-2204852

PATIENT
  Age: 76 Year
  Sex: Male
  Weight: 69 kg

DRUGS (58)
  1. ENZALUTAMIDE [Suspect]
     Active Substance: ENZALUTAMIDE
     Indication: HORMONE-REFRACTORY PROSTATE CANCER
     Dosage: DATE OF MOST RECENT DOSE OF SUSPECTED ENZALUTAMIDE PRIOR TO AE ONSET : 21/OCT/2018 AT 17:19?DATE OF
     Route: 048
     Dates: start: 20180419
  2. FAT EMULSION NOS [Concomitant]
     Active Substance: EGG PHOSPHOLIPIDS\SAFFLOWER OIL\SOYBEAN OIL
     Route: 042
     Dates: start: 20181022, end: 20181024
  3. INVERT SUGAR [Concomitant]
     Active Substance: INVERT SUGAR
     Route: 042
     Dates: start: 20181103, end: 20181106
  4. IRON SUCROSE [Concomitant]
     Active Substance: IRON SUCROSE
     Route: 042
     Dates: start: 20181206, end: 20181209
  5. IRON SUCROSE [Concomitant]
     Active Substance: IRON SUCROSE
     Route: 042
     Dates: start: 20190304, end: 20190308
  6. LACTULOSE. [Concomitant]
     Active Substance: LACTULOSE
     Route: 048
     Dates: start: 20181030, end: 20181030
  7. MORPHINE [Concomitant]
     Active Substance: MORPHINE
     Route: 042
     Dates: start: 20181116, end: 20181116
  8. DISODIUM CANTHARIDINATE [Concomitant]
     Route: 065
     Dates: start: 20190312, end: 20190313
  9. ATEZOLIZUMAB. [Suspect]
     Active Substance: ATEZOLIZUMAB
     Indication: HORMONE-REFRACTORY PROSTATE CANCER
     Dosage: DATE OF MOST RECENT DOSE OF ATEZOLIZUMAB PRIOR TO SAE ONSET : 29/SEP/2018?DATE OF MOST RECENT DOSE O
     Route: 042
     Dates: start: 20180419
  10. AMLODIPINE BESYLATE. [Concomitant]
     Active Substance: AMLODIPINE BESYLATE
     Route: 048
     Dates: start: 201707
  11. DISODIUM CLODRONATE [Concomitant]
     Route: 048
     Dates: start: 20180417
  12. MORPHINE [Concomitant]
     Active Substance: MORPHINE
     Route: 048
     Dates: start: 20181029
  13. FAT EMULSION NOS [Concomitant]
     Active Substance: EGG PHOSPHOLIPIDS\SAFFLOWER OIL\SOYBEAN OIL
     Route: 042
     Dates: start: 20180922
  14. MONTMORILLONITE [Concomitant]
     Active Substance: MONTMORILLONITE
     Route: 048
     Dates: start: 20181122, end: 20181125
  15. XINMAILONG [Concomitant]
     Route: 042
     Dates: start: 20190305, end: 20190312
  16. INSULIN INJECTION [Concomitant]
     Active Substance: INSULIN NOS
     Dosage: 6 UNIT
     Route: 042
     Dates: start: 20190301, end: 20190301
  17. FAT EMULSION NOS [Concomitant]
     Active Substance: EGG PHOSPHOLIPIDS\SAFFLOWER OIL\SOYBEAN OIL
     Route: 042
     Dates: start: 20181123, end: 20181203
  18. HUMAN SERUM ALBUMIN [Concomitant]
     Active Substance: ALBUMIN HUMAN
     Route: 042
     Dates: start: 20190304, end: 20190313
  19. FRUCTOSE [Concomitant]
     Active Substance: FRUCTOSE
     Route: 065
     Dates: start: 20181127, end: 20181204
  20. POTASSIUM CHLORIDE. [Concomitant]
     Active Substance: POTASSIUM CHLORIDE
     Dosage: SUSTAINED RELEASE
     Route: 048
     Dates: start: 20181129, end: 20181207
  21. ALPROSTADIL. [Concomitant]
     Active Substance: ALPROSTADIL
     Route: 042
     Dates: start: 20181024, end: 20181112
  22. INVERT SUGAR [Concomitant]
     Active Substance: INVERT SUGAR
     Route: 042
     Dates: start: 20181203
  23. BERBERINE [Concomitant]
     Active Substance: BERBERINE
     Route: 048
     Dates: start: 20181123, end: 20181126
  24. MORPHINE [Concomitant]
     Active Substance: MORPHINE
     Route: 042
     Dates: start: 20181107, end: 20181107
  25. MORPHINE [Concomitant]
     Active Substance: MORPHINE
     Route: 048
     Dates: start: 20181027
  26. FAT EMULSION NOS [Concomitant]
     Active Substance: EGG PHOSPHOLIPIDS\SAFFLOWER OIL\SOYBEAN OIL
     Route: 042
     Dates: start: 20180922, end: 20181024
  27. ROCEPHIN [Concomitant]
     Active Substance: CEFTRIAXONE SODIUM
     Route: 042
     Dates: start: 20181123, end: 20181128
  28. RABEPRAZOLE [Concomitant]
     Active Substance: RABEPRAZOLE
     Route: 042
     Dates: start: 20181026, end: 20181026
  29. HUMAN SERUM ALBUMIN [Concomitant]
     Active Substance: ALBUMIN HUMAN
     Route: 042
     Dates: start: 20181205, end: 20181208
  30. DEXAMETHASONE SODIUM PHOSPHATE. [Concomitant]
     Active Substance: DEXAMETHASONE SODIUM PHOSPHATE
     Route: 042
     Dates: start: 20190305, end: 20190308
  31. DEXAMETHASONE SODIUM PHOSPHATE. [Concomitant]
     Active Substance: DEXAMETHASONE SODIUM PHOSPHATE
     Route: 042
     Dates: start: 20190312, end: 20190312
  32. ZOLEDRONIC ACID [Concomitant]
     Active Substance: ZOLEDRONIC ACID
     Route: 042
     Dates: start: 20181112, end: 20181112
  33. ZOLEDRONIC ACID [Concomitant]
     Active Substance: ZOLEDRONIC ACID
     Route: 042
     Dates: start: 20181212, end: 20181212
  34. FUROSEMIDE. [Concomitant]
     Active Substance: FUROSEMIDE
     Route: 042
     Dates: start: 20190313, end: 20190313
  35. COMPOSITE POTASSIUM HYDROGEN PHOSPHATE [Concomitant]
     Route: 042
     Dates: start: 20190312, end: 20190313
  36. OMEPRAZOLE. [Concomitant]
     Active Substance: OMEPRAZOLE
     Route: 048
     Dates: start: 20190305, end: 20190305
  37. RIBONUCLEIC ACID [Concomitant]
     Active Substance: RIBONUCLEIC ACID
     Route: 042
     Dates: start: 20181022, end: 20181101
  38. MONTMORILLONITE [Concomitant]
     Active Substance: MONTMORILLONITE
     Dosage: POWDER
     Route: 065
  39. HUMAN SERUM ALBUMIN [Concomitant]
     Active Substance: ALBUMIN HUMAN
     Route: 042
     Dates: start: 20181120, end: 20181123
  40. MUCOPOLYSACCHARIDE POLYSULFURIC ACID ESTER [Concomitant]
     Route: 065
     Dates: start: 20181104, end: 20181104
  41. MUCOPOLYSACCHARIDE POLYSULFURIC ACID ESTER [Concomitant]
     Route: 065
     Dates: start: 20181203
  42. FUROSEMIDE. [Concomitant]
     Active Substance: FUROSEMIDE
     Route: 065
     Dates: start: 20190301, end: 20190301
  43. ENEMAC [Concomitant]
     Route: 065
     Dates: start: 20190308, end: 20190308
  44. AMLODIPINE BESYLATE. [Concomitant]
     Active Substance: AMLODIPINE BESYLATE
     Route: 048
     Dates: start: 20181030, end: 20181103
  45. MORPHINE [Concomitant]
     Active Substance: MORPHINE
     Route: 048
     Dates: start: 20181022, end: 20181022
  46. FAT EMULSION NOS [Concomitant]
     Active Substance: EGG PHOSPHOLIPIDS\SAFFLOWER OIL\SOYBEAN OIL
     Route: 042
     Dates: start: 20190304, end: 20190313
  47. RIBONUCLEIC ACID [Concomitant]
     Active Substance: RIBONUCLEIC ACID
     Dosage: 4 AMPULE
     Route: 042
     Dates: start: 20181022, end: 20181101
  48. TAMSULOSIN [Concomitant]
     Active Substance: TAMSULOSIN
     Route: 048
     Dates: start: 20181029, end: 20181029
  49. INVERT SUGAR [Concomitant]
     Active Substance: INVERT SUGAR
     Route: 042
     Dates: start: 20181122, end: 20181123
  50. CEFOPERAZONE SODIUM;SULBACTAM SODIUM [Concomitant]
     Route: 042
     Dates: start: 20181128, end: 20181202
  51. MORPHINE [Concomitant]
     Active Substance: MORPHINE
     Route: 042
     Dates: start: 20181107, end: 20181107
  52. FUROSEMIDE. [Concomitant]
     Active Substance: FUROSEMIDE
     Route: 050
     Dates: start: 20181214, end: 20181214
  53. MANNITOL. [Concomitant]
     Active Substance: MANNITOL
     Route: 042
     Dates: start: 20190305, end: 20190308
  54. NADROPARIN CALCIUM [Concomitant]
     Active Substance: NADROPARIN CALCIUM
     Route: 058
     Dates: start: 20181024, end: 20181102
  55. DEXAMETHASONE SODIUM PHOSPHATE. [Concomitant]
     Active Substance: DEXAMETHASONE SODIUM PHOSPHATE
     Route: 042
     Dates: start: 20181123, end: 20181126
  56. DEXAMETHASONE SODIUM PHOSPHATE. [Concomitant]
     Active Substance: DEXAMETHASONE SODIUM PHOSPHATE
     Route: 042
     Dates: start: 20190312, end: 20190312
  57. VITAMIN B6 [Concomitant]
     Active Substance: PYRIDOXINE HYDROCHLORIDE
     Route: 065
     Dates: start: 20190312, end: 20190313
  58. ALPROSTADIL. [Concomitant]
     Active Substance: ALPROSTADIL
     Route: 042
     Dates: start: 20181024, end: 20181112

REACTIONS (2)
  - Bone marrow failure [Not Recovered/Not Resolved]
  - Tumour pain [Not Recovered/Not Resolved]

NARRATIVE: CASE EVENT DATE: 20180814
